FAERS Safety Report 9752183 (Version 1)
Quarter: 2013Q4

REPORT INFORMATION
  Report Type: Spontaneous
  Country: IN (occurrence: None)
  Receive Date: 20131211
  Receipt Date: 20131211
  Transmission Date: 20140711
  Serious: Yes (Other)
  Sender: FDA-Public Use
  Company Number: AUR-APL-2013-10180

PATIENT
  Age: 35 Year
  Sex: Female

DRUGS (3)
  1. NEVIRAPINE [Suspect]
     Indication: HIV INFECTION
     Dosage: 200 MG, 1 IN 1 D
  2. LAMIVUDINE [Concomitant]
  3. ZIDOVUDINE (ZIDOVUDINE) [Concomitant]

REACTIONS (1)
  - Stevens-Johnson syndrome [None]
